FAERS Safety Report 9858603 (Version 1)
Quarter: 2014Q1

REPORT INFORMATION
  Report Type: Spontaneous
  Country: US (occurrence: None)
  Receive Date: 20140130
  Receipt Date: 20140130
  Transmission Date: 20141002
  Serious: No
  Sender: FDA-Public Use
  Company Number: None

PATIENT
  Age: 63 Year
  Sex: Male
  Weight: 72.58 kg

DRUGS (1)
  1. OXYBUTYNIN [Suspect]
     Route: 048

REACTIONS (4)
  - Adverse drug reaction [None]
  - Drug ineffective [None]
  - Product substitution issue [None]
  - Quality of life decreased [None]
